FAERS Safety Report 4699896-8 (Version None)
Quarter: 2005Q2

REPORT INFORMATION
  Report Type: 
  Country: None (occurrence: None)
  Receive Date: 20050624
  Receipt Date: 20050622
  Transmission Date: 20051028
  Serious: Yes (Death, Other)
  Sender: FDA-Public Use
  Company Number: 005054

PATIENT
  Age: 30 Year
  Sex: Female

DRUGS (4)
  1. CLARAVIS [Suspect]
     Indication: ACNE
     Dosage: SEE IMAGE, ORAL
     Route: 048
     Dates: start: 20030925, end: 20031101
  2. CLARAVIS [Suspect]
     Indication: ACNE
     Dosage: SEE IMAGE, ORAL
     Route: 048
     Dates: start: 20031101, end: 20031201
  3. CLARAVIS [Suspect]
     Indication: ACNE
     Dosage: SEE IMAGE, ORAL
     Route: 048
     Dates: start: 20031201, end: 20040308
  4. MULTIVITAMINS (ERGOCALCIFEROL, PANTHENOL,NICOTINAMIDE, RIBOFLAVIN, THI [Concomitant]

REACTIONS (8)
  - AGORAPHOBIA [None]
  - BLOOD CHOLESTEROL INCREASED [None]
  - BLOOD TRIGLYCERIDES INCREASED [None]
  - COMPLETED SUICIDE [None]
  - GUN SHOT WOUND [None]
  - OVERDOSE [None]
  - SOCIAL AVOIDANT BEHAVIOUR [None]
  - SUICIDE ATTEMPT [None]
